FAERS Safety Report 20505307 (Version 1)
Quarter: 2022Q1

REPORT INFORMATION
  Report Type: Spontaneous
  Country: SI (occurrence: SI)
  Receive Date: 20220223
  Receipt Date: 20220223
  Transmission Date: 20220423
  Serious: Yes (Other)
  Sender: FDA-Public Use
  Company Number: None

PATIENT
  Age: 38 Year
  Sex: Male

DRUGS (11)
  1. DOXORUBICIN [Suspect]
     Active Substance: DOXORUBICIN
     Indication: Primary mediastinal large B-cell lymphoma
     Dosage: DOXORUBICIN TEVA 2 MG / ML CONCENTRATE FOR SOLUTION FOR INFUSION,UNIT DOSE 21.5MG,EXP.D: 2022-03-31
     Route: 042
     Dates: start: 20201103, end: 20210223
  2. ETOPOSIDE [Suspect]
     Active Substance: ETOPOSIDE
     Indication: Primary mediastinal large B-cell lymphoma
     Dosage: EPOSIN 20 MG / ML CONCENTRATE FOR SOLUTION FOR INFUSION,EXP.D: 2022-04-30?OFF LABEL USE = EXPECTEDNE
     Route: 042
     Dates: start: 20201103, end: 20210223
  3. VINCRISTINE SULFATE [Suspect]
     Active Substance: VINCRISTINE SULFATE
     Indication: Primary mediastinal large B-cell lymphoma
     Dosage: VINCRISTINE SULPHATE PHARMACHEMIE,UNIT DOSE 0.86MG,MEDICINAL PRODUCT WITH PROVISIONAL AUTHORIZATION
     Route: 042
     Dates: start: 20201103, end: 20210223
  4. FRAGMIN [Concomitant]
     Active Substance: DALTEPARIN SODIUM
     Dosage: FRAGMIN 5.000 I.E./0,2 ML,PRE-FILLED SYRINGE
  5. PANTOPRAZOLE SODIUM [Concomitant]
     Active Substance: PANTOPRAZOLE SODIUM
     Dosage: NOLPAZA 40 MG GASTRO-RESISTANT TABLETS,UNIT DOSE 40MG
  6. ZOLPIDEM TARTRATE [Concomitant]
     Active Substance: ZOLPIDEM TARTRATE
     Dosage: SANVAL 10 MG FILM-COATED TABLETS, UNIT DOSE: 10 MG
  7. PERINDOPRIL [Concomitant]
     Active Substance: PERINDOPRIL
     Dosage: PRENESSA 2 MG TABLETS,UNIT DOSE 2 MG
  8. ALLOPURINOL [Concomitant]
     Active Substance: ALLOPURINOL
     Dosage: ACCORDING TO THE SCHEME
  9. REGLAN [Concomitant]
     Active Substance: METOCLOPRAMIDE HYDROCHLORIDE
  10. ZIEXTENZO [Concomitant]
     Active Substance: PEGFILGRASTIM-BMEZ
     Dosage: ZIEXTENZO 6 MG, PRE-FILLED SYRINGE
  11. BISOPROLOL FUMARATE [Concomitant]
     Active Substance: BISOPROLOL FUMARATE
     Dosage: SOBYCOR 2.5 MG FILM-COATED TABLETS, UNIT DOSE: 2.5 MG

REACTIONS (1)
  - Hyperbilirubinaemia [Recovered/Resolved]

NARRATIVE: CASE EVENT DATE: 20201218
